FAERS Safety Report 4562942-6 (Version None)
Quarter: 2005Q1

REPORT INFORMATION
  Report Type: 
  Country: None (occurrence: None)
  Receive Date: 20050125
  Receipt Date: 20050112
  Transmission Date: 20050727
  Serious: Yes (Death, Other)
  Sender: FDA-Public Use
  Company Number: 2005013942

PATIENT
  Sex: Male

DRUGS (1)
  1. PREDNISOLONE [Suspect]
     Indication: ROSACEA
     Dosage: 35 MG (35 MG, 1 IN 1 D)

REACTIONS (5)
  - CAESAREAN SECTION [None]
  - DRUG EXPOSURE DURING PREGNANCY [None]
  - FOETAL ARRHYTHMIA [None]
  - HEART DISEASE CONGENITAL [None]
  - INTRA-UTERINE DEATH [None]
